FAERS Safety Report 5533321-X (Version None)
Quarter: 2007Q4

REPORT INFORMATION
  Report Type: 
  Country: None (occurrence: None)
  Receive Date: 20071204
  Receipt Date: 20071122
  Transmission Date: 20080405
  Serious: Yes (Other)
  Sender: FDA-Public Use
  Company Number: JP-ELI_LILLY_AND_COMPANY-JP200710000009

PATIENT
  Age: 30 Year
  Sex: Female

DRUGS (14)
  1. ZYPREXA [Suspect]
     Indication: SCHIZOPHRENIA
     Dosage: 10 MG, DAILY (1/D)
     Route: 048
     Dates: start: 20070104, end: 20070110
  2. ZYPREXA [Suspect]
     Dosage: 10 MG, DAILY (1/D)
     Route: 048
     Dates: start: 20070111, end: 20070101
  3. ZYPREXA [Suspect]
     Dosage: 20 MG, DAILY (1/D)
     Route: 048
     Dates: start: 20070101, end: 20070120
  4. ROHYPNOL [Concomitant]
     Indication: INSOMNIA
     Dosage: 4 MG, DAILY (1/D)
     Route: 048
     Dates: start: 20061211, end: 20061227
  5. ROHYPNOL [Concomitant]
     Dosage: 2 MG, DAILY (1/D)
     Route: 048
     Dates: start: 20061228, end: 20070103
  6. ROHYPNOL [Concomitant]
     Dosage: 1 MG, DAILY (1/D)
     Route: 048
     Dates: start: 20070104, end: 20070110
  7. ROHYPNOL [Concomitant]
     Dosage: 2 MG, DAILY (1/D)
     Route: 048
     Dates: start: 20070111, end: 20070120
  8. SOLANAX [Concomitant]
     Dosage: 0.4 MG, 3/D
     Route: 048
     Dates: start: 20061211, end: 20061227
  9. SOLANAX [Concomitant]
     Dosage: 0.4 MG, AS NEEDED
     Route: 048
     Dates: start: 20061211, end: 20061227
  10. SOLANAX [Concomitant]
     Dosage: 2.4 MG, DAILY (1/D)
     Route: 048
     Dates: start: 20061228, end: 20070103
  11. SOLANAX [Concomitant]
     Dosage: 0.4 MG, 4/D
     Route: 048
     Dates: start: 20070115, end: 20070120
  12. NITRAZEPAM [Concomitant]
     Dosage: 5 MG, DAILY (1/D)
     Dates: start: 20061228, end: 20070120
  13. TETRAMIDE [Concomitant]
     Dosage: 30 MG, DAILY (1/D)
     Route: 048
     Dates: start: 20061228, end: 20070110
  14. TETRAMIDE [Concomitant]
     Dosage: 20 MG, DAILY (1/D)
     Route: 048
     Dates: start: 20070111, end: 20070114

REACTIONS (2)
  - DEEP VEIN THROMBOSIS [None]
  - PULMONARY INFARCTION [None]
